FAERS Safety Report 4642906-4 (Version None)
Quarter: 2005Q2

REPORT INFORMATION
  Report Type: 
  Country: None (occurrence: None)
  Receive Date: 20050421
  Receipt Date: 20050413
  Transmission Date: 20051028
  Serious: Yes (Hospitalization)
  Sender: FDA-Public Use
  Company Number: HQWYE017414APR05

PATIENT
  Age: 77 Year
  Sex: Male

DRUGS (7)
  1. PROTIUM (PANTOPRAZOLE, INJECTION) [Suspect]
     Indication: PEPTIC ULCER
     Dosage: 40 MG 1X PER 1 DAY
     Route: 042
     Dates: start: 20050102, end: 20050127
  2. LANSOPRAZOLE [Suspect]
     Indication: PEPTIC ULCER
     Dosage: 30 MG 1X PER 1 DAY
     Route: 048
     Dates: start: 20050127, end: 20050201
  3. FLOXACILLIN (FLUCLOXACILLIN) [Concomitant]
  4. TEICOPLANIN (TEICOPLANIN) [Concomitant]
  5. TAZOCIN (PIPERACILLIN/TAZOBACTAM) [Concomitant]
  6. ZYVOX [Concomitant]
  7. AMIODARONE HCL [Concomitant]

REACTIONS (4)
  - ALANINE AMINOTRANSFERASE INCREASED [None]
  - BLOOD ALKALINE PHOSPHATASE INCREASED [None]
  - BLOOD BILIRUBIN INCREASED [None]
  - LIVER FUNCTION TEST ABNORMAL [None]
